FAERS Safety Report 20207135 (Version 1)
Quarter: 2021Q4

REPORT INFORMATION
  Report Type: Spontaneous
  Country: FR (occurrence: FR)
  Receive Date: 20211220
  Receipt Date: 20211220
  Transmission Date: 20220303
  Serious: Yes (Death, Hospitalization, Other)
  Sender: FDA-Public Use
  Company Number: FR-SA-200311313FR

PATIENT
  Age: 60 Year
  Sex: Male

DRUGS (5)
  1. NEUPOGEN [Suspect]
     Active Substance: FILGRASTIM
     Indication: Neutropenia
     Dosage: UNK
     Route: 042
  2. DACARBAZINE [Suspect]
     Active Substance: DACARBAZINE
     Indication: Hodgkin^s disease
     Dosage: UNK UNK,QCY
     Route: 042
     Dates: start: 20010824
  3. VINBLASTINE SULFATE [Suspect]
     Active Substance: VINBLASTINE SULFATE
     Indication: Hodgkin^s disease
     Dosage: UNK UNK,QCY
     Route: 042
     Dates: start: 20010824
  4. ADRIABLASTINA [Suspect]
     Active Substance: DOXORUBICIN
     Indication: Hodgkin^s disease
     Dosage: UNK UNK,QCY
     Route: 042
     Dates: start: 20010824
  5. BLEOMYCIN SULFATE [Suspect]
     Active Substance: BLEOMYCIN SULFATE
     Indication: Hodgkin^s disease
     Dosage: UNK UNK,QCY
     Route: 042
     Dates: start: 20010824

REACTIONS (12)
  - Cardiac failure [Fatal]
  - Acute respiratory distress syndrome [Fatal]
  - Influenza [Fatal]
  - Deep vein thrombosis [Fatal]
  - Rales [Fatal]
  - Acute kidney injury [Fatal]
  - Sinusitis [Fatal]
  - Neutropenia [Fatal]
  - Hypoxia [Fatal]
  - Interstitial lung disease [Fatal]
  - Paraesthesia [Fatal]
  - Myalgia [Fatal]

NARRATIVE: CASE EVENT DATE: 20020122
